FAERS Safety Report 8564021-X (Version None)
Quarter: 2012Q3

REPORT INFORMATION
  Report Type: 
  Country: None (occurrence: None)
  Receive Date: 20120803
  Receipt Date: 20120801
  Transmission Date: 20120928
  Serious: Yes (Other)
  Sender: FDA-Public Use
  Company Number: PHFR2012GB003647

PATIENT
  Sex: Male
  Weight: 70.2 kg

DRUGS (8)
  1. AMLODIPINE [Concomitant]
     Indication: HYPERTENSION
     Dosage: 10 MG, UNK
     Route: 048
  2. IRBESARTAN [Concomitant]
     Indication: HYPERTENSION
     Dosage: 150 MG, UNK
     Route: 048
  3. EXELON [Suspect]
     Dosage: 12 MG, BID
     Route: 048
     Dates: start: 20120601
  4. HYDROXOCOBALAMIN [Concomitant]
     Indication: VITAMIN B12 DEFICIENCY
     Dosage: 1 MG, UNK
     Route: 030
  5. PRAVASTATIN [Concomitant]
     Indication: HYPERCHOLESTEROLAEMIA
  6. EXELON [Suspect]
     Indication: DEMENTIA
     Dosage: 6 MG, BID
     Route: 048
     Dates: start: 20120301
  7. ATENOLOL [Concomitant]
     Indication: HYPERTENSION
     Dosage: 50 MG, UNK
     Route: 048
  8. ZOPICLONE [Concomitant]
     Indication: HYPNOTHERAPY
     Dosage: 7.5 MG, UNK
     Route: 048

REACTIONS (7)
  - INCORRECT DOSE ADMINISTERED [None]
  - SOMNOLENCE [None]
  - ABDOMINAL PAIN [None]
  - ERYTHEMA [None]
  - DECREASED APPETITE [None]
  - SKIN WARM [None]
  - WEIGHT DECREASED [None]
